FAERS Safety Report 7464024-2 (Version None)
Quarter: 2011Q2

REPORT INFORMATION
  Report Type: 
  Country: None (occurrence: None)
  Receive Date: 20110506
  Receipt Date: 20110425
  Transmission Date: 20111010
  Serious: Yes (Life-Threatening, Hospitalization)
  Sender: FDA-Public Use
  Company Number: CA-ELI_LILLY_AND_COMPANY-CA201102003527

PATIENT
  Age: 62 Year
  Sex: Female
  Weight: 49.887 kg

DRUGS (7)
  1. FORTEO [Suspect]
     Indication: OSTEOPOROSIS
     Dosage: 20 UG, DAILY (1/D)
     Route: 058
     Dates: start: 20101201
  2. CHEMOTHERAPEUTICS [Concomitant]
     Dosage: UNK, MONTHLY (1/M)
  3. FORTEO [Suspect]
     Dosage: 20 UG, UNK
     Route: 058
     Dates: start: 20110318
  4. GABAPENTIN [Concomitant]
  5. NEXIUM [Concomitant]
  6. PREDNISOLONE [Concomitant]
  7. CALCIUM [Concomitant]

REACTIONS (5)
  - FISTULA [None]
  - MOBILITY DECREASED [None]
  - POLYARTERITIS NODOSA [None]
  - ABDOMINAL PAIN UPPER [None]
  - WEIGHT DECREASED [None]
